FAERS Safety Report 9262944 (Version 1)
Quarter: 2013Q2

REPORT INFORMATION
  Report Type: Spontaneous
  Country: FR (occurrence: None)
  Receive Date: 20130426
  Receipt Date: 20130426
  Transmission Date: 20140414
  Serious: Yes (Hospitalization, Other)
  Sender: FDA-Public Use
  Company Number: AXC-2013-000156

PATIENT
  Age: 52 Year
  Sex: Male

DRUGS (7)
  1. URSODEOXYCHOLIC ACID [Suspect]
     Indication: PRODUCT USED FOR UNKNOWN INDICATION
     Route: 048
     Dates: end: 20120618
  2. CELLCEPT [Suspect]
     Indication: LIVER TRANSPLANT
     Route: 048
     Dates: start: 20120417, end: 20120618
  3. INEXIUM [Suspect]
     Indication: PRODUCT USED FOR UNKNOWN INDICATION
     Route: 048
     Dates: end: 20120618
  4. AMLOR (AMLODIPINE BESILATE) [Concomitant]
  5. LASILIX/0032601/(FUROSEMIDE) [Concomitant]
  6. NEORAL (CICLOSPORIN) [Concomitant]
  7. TAZOCILLINE [Suspect]
     Route: 051
     Dates: start: 201306, end: 20120618

REACTIONS (2)
  - Agranulocytosis [None]
  - Peritonitis [None]
